FAERS Safety Report 5857103-4 (Version None)
Quarter: 2008Q3

REPORT INFORMATION
  Report Type: 
  Country: None (occurrence: None)
  Receive Date: 20080825
  Receipt Date: 20071030
  Transmission Date: 20090109
  Serious: No
  Sender: FDA-Public Use
  Company Number: A0690585A

PATIENT
  Age: 59 Year
  Sex: Female

DRUGS (2)
  1. BEXXAR [Suspect]
     Indication: NON-HODGKIN'S LYMPHOMA
     Route: 042
     Dates: start: 20071026
  2. VITAMIN TAB [Concomitant]

REACTIONS (2)
  - FATIGUE [None]
  - NAUSEA [None]
